FAERS Safety Report 9184503 (Version 1)
Quarter: 2013Q1

REPORT INFORMATION
  Report Type: Report from Study
  Country: DE (occurrence: DE)
  Receive Date: 20130322
  Receipt Date: 20130322
  Transmission Date: 20140127
  Serious: Yes (Hospitalization)
  Sender: FDA-Public Use
  Company Number: DE-ABBOTT-13P-062-1064933-00

PATIENT
  Sex: Female

DRUGS (5)
  1. HUMIRA [Suspect]
     Indication: RHEUMATOID ARTHRITIS
     Route: 058
     Dates: start: 20120301, end: 2013
  2. HUMIRA [Suspect]
     Route: 058
     Dates: start: 20130312
  3. RAMILICH [Concomitant]
     Indication: HYPERTENSION
  4. L-THYROXIN [Concomitant]
     Indication: HYPOTHYROIDISM
  5. BETA BLOCKING AGENTS [Concomitant]
     Indication: PRODUCT USED FOR UNKNOWN INDICATION

REACTIONS (1)
  - Arthrodesis [Recovering/Resolving]
